FAERS Safety Report 22872609 (Version 5)
Quarter: 2023Q4

REPORT INFORMATION
  Report Type: Spontaneous
  Country: CN (occurrence: CN)
  Receive Date: 20230828
  Receipt Date: 20231107
  Transmission Date: 20240109
  Serious: Yes (Other)
  Sender: FDA-Public Use
  Company Number: CN-ROCHE-3408588

PATIENT
  Age: 71 Year
  Sex: Female
  Weight: 59 kg

DRUGS (10)
  1. CAPECITABINE [Suspect]
     Active Substance: CAPECITABINE
     Indication: Triple negative breast cancer
     Dosage: DAILY DOSE: 3200 MILLIGRAM
     Route: 048
     Dates: start: 20230804
  2. CAPECITABINE [Suspect]
     Active Substance: CAPECITABINE
     Indication: Triple negative breast cancer
     Dosage: DAILY DOSE: 3200 MILLIGRAM
     Route: 048
  3. CARBOPLATIN [Suspect]
     Active Substance: CARBOPLATIN
     Indication: Triple negative breast cancer
     Route: 033
     Dates: start: 20230821
  4. ATEZOLIZUMAB [Suspect]
     Active Substance: ATEZOLIZUMAB
     Indication: Triple negative breast cancer
     Dosage: INTRAVENOUS DRIP; ON 04/AUG/2023, MOST RECENT DOSE (1200 MG) OF LAST BLINDED ATEZOLIZUMAB WAS ADM...
     Route: 042
     Dates: start: 20230804, end: 20230804
  5. ATEZOLIZUMAB [Suspect]
     Active Substance: ATEZOLIZUMAB
     Indication: Triple negative breast cancer
     Route: 042
  6. FOSAPREPITANT [Concomitant]
     Active Substance: FOSAPREPITANT
     Indication: Prophylaxis of nausea and vomiting
     Dates: start: 20230821, end: 20230821
  7. CIMETIDINE [Concomitant]
     Active Substance: CIMETIDINE
     Indication: Gastritis prophylaxis
     Dates: start: 20230821, end: 20230821
  8. TROPISETRON [Concomitant]
     Active Substance: TROPISETRON
     Indication: Prophylaxis of nausea and vomiting
     Dates: start: 20230821, end: 20230821
  9. MAGNESIUM ISOGLYCYRRHIZINATE [Concomitant]
     Active Substance: MAGNESIUM ISOGLYCYRRHIZINATE
     Dates: start: 20230821, end: 20230822
  10. LENTINAN [Concomitant]
     Active Substance: LENTINAN
     Dates: start: 20230821, end: 20230821

REACTIONS (7)
  - Pleural effusion [Recovered/Resolved]
  - Hypoalbuminaemia [Unknown]
  - Hypocalcaemia [Unknown]
  - Hypokalaemia [Unknown]
  - Hyponatraemia [Unknown]
  - Off label use [Unknown]
  - Pericardial effusion [Unknown]

NARRATIVE: CASE EVENT DATE: 20230817
